FAERS Safety Report 12088336 (Version 2)
Quarter: 2016Q2

REPORT INFORMATION
  Report Type: Spontaneous
  Country: US (occurrence: US)
  Receive Date: 20160218
  Receipt Date: 20160418
  Transmission Date: 20160815
  Serious: Yes (Other)
  Sender: FDA-Public Use
  Company Number: US-BEH-2016058732

PATIENT
  Sex: Female
  Weight: 91 kg

DRUGS (22)
  1. MECLIZINE [Concomitant]
     Active Substance: MECLIZINE HYDROCHLORIDE
  2. EPIPEN [Concomitant]
     Active Substance: EPINEPHRINE
  3. SYMBICORT [Concomitant]
     Active Substance: BUDESONIDE\FORMOTEROL FUMARATE DIHYDRATE
  4. ASPIRIN. [Concomitant]
     Active Substance: ASPIRIN
  5. VITAMIN B [Concomitant]
     Active Substance: VITAMIN B
  6. MULTIVITAMINS [Concomitant]
     Active Substance: VITAMINS
  7. DIPHENHYDRAMINE. [Concomitant]
     Active Substance: DIPHENHYDRAMINE
  8. MELOXICAM. [Concomitant]
     Active Substance: MELOXICAM
  9. SINGULAIR [Concomitant]
     Active Substance: MONTELUKAST SODIUM
  10. TYLENOL [Concomitant]
     Active Substance: ACETAMINOPHEN
  11. PROBIOTIC [Concomitant]
     Active Substance: PROBIOTICS NOS
  12. SIMVASTATIN. [Concomitant]
     Active Substance: SIMVASTATIN
  13. FISH OIL [Concomitant]
     Active Substance: FISH OIL
  14. SYSTANE (HYPROMELLOSE 2910 (4000 MPA.S)) [Concomitant]
     Active Substance: HYPROMELLOSE 2910 (4000 MPA.S)
  15. SPIRONOLACTONE. [Concomitant]
     Active Substance: SPIRONOLACTONE
  16. TOPROL XL [Concomitant]
     Active Substance: METOPROLOL SUCCINATE
  17. HIZENTRA [Suspect]
     Active Substance: HUMAN IMMUNOGLOBULIN G
     Indication: IMMUNODEFICIENCY COMMON VARIABLE
     Dosage: 2 GM 10 ML VIAL
     Route: 058
     Dates: start: 20100629
  18. PREDNISONE. [Concomitant]
     Active Substance: PREDNISONE
  19. GLUCOSAMINE [Concomitant]
     Active Substance: GLUCOSAMINE
  20. NIACIN. [Concomitant]
     Active Substance: NIACIN
  21. FLONASE [Concomitant]
     Active Substance: FLUTICASONE PROPIONATE
  22. LORATADINE. [Concomitant]
     Active Substance: LORATADINE

REACTIONS (2)
  - Lower respiratory tract infection [Unknown]
  - Upper respiratory tract infection [Unknown]
